FAERS Safety Report 10305012 (Version 2)
Quarter: 2014Q3

REPORT INFORMATION
  Report Type: Spontaneous
  Country: FR (occurrence: None)
  Receive Date: 20140710
  Receipt Date: 20140930
  Transmission Date: 20150326
  Serious: Yes (Hospitalization)
  Sender: FDA-Public Use
  Company Number: DEP_02182_2014

PATIENT
  Age: 64 Year
  Sex: Female

DRUGS (11)
  1. LYRICA [Concomitant]
     Active Substance: PREGABALIN
  2. MEDIATENSYL [Concomitant]
     Active Substance: URAPIDIL
  3. TRAMADOL HYDROCHLORIDE. [Concomitant]
     Active Substance: TRAMADOL HYDROCHLORIDE
  4. PECFENT [Suspect]
     Active Substance: FENTANYL CITRATE
     Indication: PAIN
     Dates: start: 20131204, end: 20131221
  5. OXYCONTIN [Suspect]
     Active Substance: OXYCODONE HYDROCHLORIDE
     Indication: PAIN
     Route: 048
     Dates: start: 20131204, end: 20131221
  6. ZAMUDOL [Suspect]
     Active Substance: TRAMADOL HYDROCHLORIDE
     Indication: PAIN
     Route: 048
     Dates: start: 20131204, end: 20131221
  7. DAFALGAN [Concomitant]
     Active Substance: ACETAMINOPHEN
  8. KLIPAL [Concomitant]
     Active Substance: ACETAMINOPHEN\CODEINE PHOSPHATE
  9. BACLOFEN. [Concomitant]
     Active Substance: BACLOFEN
  10. DEROXAT [Concomitant]
     Active Substance: PAROXETINE HYDROCHLORIDE
  11. FUROSEMIDE. [Concomitant]
     Active Substance: FUROSEMIDE

REACTIONS (9)
  - Respiratory failure [None]
  - Coma [None]
  - Tachycardia [None]
  - Respiratory depression [None]
  - Respiratory acidosis [None]
  - Overdose [None]
  - Osteonecrosis [None]
  - Somnolence [None]
  - Chronic obstructive pulmonary disease [None]

NARRATIVE: CASE EVENT DATE: 20131221
